FAERS Safety Report 9920254 (Version 1)
Quarter: 2014Q1

REPORT INFORMATION
  Report Type: Spontaneous
  Country: US (occurrence: US)
  Receive Date: 20140224
  Receipt Date: 20140224
  Transmission Date: 20141002
  Serious: Yes (Other)
  Sender: FDA-Public Use
  Company Number: US-TAKEDA-2014TUS001275

PATIENT
  Sex: 0

DRUGS (2)
  1. COLCRYS [Suspect]
     Dosage: 0.6 MG, BID
     Route: 048
  2. ALL OTHER THERAPEUTIC PRODUCTS [Concomitant]

REACTIONS (5)
  - Renal failure acute [Unknown]
  - Dehydration [Unknown]
  - Heart rate increased [Unknown]
  - Thirst [Unknown]
  - Diarrhoea [Unknown]
